FAERS Safety Report 7319092-5 (Version None)
Quarter: 2011Q1

REPORT INFORMATION
  Report Type: 
  Country: None (occurrence: None)
  Receive Date: 20110228
  Receipt Date: 20100830
  Transmission Date: 20110831
  Serious: Yes (Other)
  Sender: FDA-Public Use
  Company Number: US-BAYER-201010672NA

PATIENT
  Sex: Female
  Weight: 100 kg

DRUGS (5)
  1. YASMIN [Suspect]
     Indication: ORAL CONTRACEPTION
     Dates: start: 20070301, end: 20090601
  2. ANTIBIOTICS [Concomitant]
     Indication: URINARY TRACT INFECTION
  3. YAZ [Suspect]
     Indication: ORAL CONTRACEPTION
     Dates: start: 20070301, end: 20090601
  4. OCELLA [Suspect]
     Indication: ORAL CONTRACEPTION
     Dates: start: 20070301, end: 20090601
  5. CELEXA [Concomitant]

REACTIONS (9)
  - PAIN [None]
  - GALLBLADDER CHOLESTEROLOSIS [None]
  - NAUSEA [None]
  - VOMITING [None]
  - FLATULENCE [None]
  - DISCOMFORT [None]
  - ABDOMINAL DISTENSION [None]
  - CHOLECYSTITIS CHRONIC [None]
  - MUSCLE SPASMS [None]
